FAERS Safety Report 14973612 (Version 2)
Quarter: 2018Q3

REPORT INFORMATION
  Report Type: Spontaneous
  Country: DE (occurrence: DE)
  Receive Date: 20180605
  Receipt Date: 20180705
  Transmission Date: 20181010
  Serious: Yes (Hospitalization, Other)
  Sender: FDA-Public Use
  Company Number: DE-MYLANLABS-2017M1031638

PATIENT
  Age: 53 Year
  Sex: Female

DRUGS (9)
  1. CLOZAPINE. [Suspect]
     Active Substance: CLOZAPINE
     Indication: PRODUCT USED FOR UNKNOWN INDICATION
     Dosage: 600 MG, QD
     Route: 048
     Dates: start: 20060101
  2. ATOSIL                             /00033002/ [Interacting]
     Active Substance: PROMETHAZINE HYDROCHLORIDE
     Indication: PRODUCT USED FOR UNKNOWN INDICATION
     Dosage: 25 MG, QD
     Route: 048
     Dates: start: 20160915, end: 20161014
  3. ATOSIL                             /00033002/ [Interacting]
     Active Substance: PROMETHAZINE HYDROCHLORIDE
     Dosage: 25 MG, QD
     Route: 048
     Dates: start: 20161104, end: 20161104
  4. DIPIPERON [Interacting]
     Active Substance: PIPAMPERONE
     Dosage: 40 MG, PM
     Route: 048
     Dates: start: 20161014
  5. ATOSIL                             /00033002/ [Interacting]
     Active Substance: PROMETHAZINE HYDROCHLORIDE
     Dosage: 50 MG, QD
     Route: 048
     Dates: start: 20161105, end: 20161105
  6. DIPIPERON [Interacting]
     Active Substance: PIPAMPERONE
     Indication: PRODUCT USED FOR UNKNOWN INDICATION
     Dosage: 40 MG, QD
     Route: 048
     Dates: start: 20161004
  7. ABILIFY [Interacting]
     Active Substance: ARIPIPRAZOLE
     Indication: GENERALISED TONIC-CLONIC SEIZURE
     Dosage: 5 MG, QD
     Route: 048
     Dates: start: 20161027, end: 20161102
  8. ATOSIL                             /00033002/ [Interacting]
     Active Substance: PROMETHAZINE HYDROCHLORIDE
     Dosage: 25 MG, UNK
  9. ABILIFY [Interacting]
     Active Substance: ARIPIPRAZOLE
     Dosage: 10 MG, QD
     Route: 048
     Dates: start: 20161103, end: 20161106

REACTIONS (14)
  - Leukoencephalopathy [Unknown]
  - Leukocytosis [Unknown]
  - Product use in unapproved indication [Unknown]
  - Generalised tonic-clonic seizure [Recovered/Resolved]
  - Prescribed underdose [Unknown]
  - Drug interaction [Recovered/Resolved]
  - Cerebral disorder [Unknown]
  - Restlessness [Unknown]
  - Sleep disorder [Unknown]
  - Enuresis [Unknown]
  - Subgaleal haematoma [Unknown]
  - Unresponsive to stimuli [Unknown]
  - Drug ineffective [Unknown]
  - Laboratory test abnormal [Unknown]

NARRATIVE: CASE EVENT DATE: 20161105
